FAERS Safety Report 20939756 (Version 1)
Quarter: 2022Q2

REPORT INFORMATION
  Report Type: Spontaneous
  Country: CN (occurrence: CN)
  Receive Date: 20220609
  Receipt Date: 20220609
  Transmission Date: 20220720
  Serious: Yes (Life-Threatening, Hospitalization, Other)
  Sender: FDA-Public Use
  Company Number: CN-BRISTOL-MYERS SQUIBB COMPANY-2022-055387

PATIENT
  Age: 70 Year
  Sex: Male
  Weight: 64.9 kg

DRUGS (3)
  1. AZACITIDINE [Suspect]
     Active Substance: AZACITIDINE
     Indication: Myelodysplastic syndrome
     Dosage: 75 MILLIGRAM/SQ. METER
     Route: 058
     Dates: start: 20210603, end: 20210708
  2. VENETOCLAX [Suspect]
     Active Substance: VENETOCLAX
     Indication: Myelodysplastic syndrome
     Dosage: 14 DAYS ON, 14 DAYS OFF
     Route: 048
     Dates: start: 20210603, end: 20210715
  3. ADALAT [Concomitant]
     Active Substance: NIFEDIPINE
     Indication: Hypertension
     Dosage: 30 MILLIGRAM
     Route: 065
     Dates: start: 2003

REACTIONS (1)
  - Pneumonia [Not Recovered/Not Resolved]

NARRATIVE: CASE EVENT DATE: 20210727
